FAERS Safety Report 9797403 (Version 1)
Quarter: 2014Q1

REPORT INFORMATION
  Report Type: Spontaneous
  Country: US (occurrence: None)
  Receive Date: 20140102
  Receipt Date: 20140102
  Transmission Date: 20141002
  Serious: Yes (Other)
  Sender: FDA-Public Use
  Company Number: None

PATIENT
  Sex: Female
  Weight: 50.8 kg

DRUGS (14)
  1. LIPITOR [Suspect]
     Indication: BLOOD CHOLESTEROL INCREASED
     Route: 048
     Dates: start: 198705, end: 200610
  2. LANSOPRAZOLE [Concomitant]
  3. METOPROLOL [Concomitant]
  4. METFORMIN [Concomitant]
  5. FUROSEMIDE [Concomitant]
  6. MOEXIPRIL [Concomitant]
  7. CENTRUM [Concomitant]
  8. ASPIRIN [Concomitant]
  9. CALCIUM [Concomitant]
  10. B-COMPLEX [Concomitant]
  11. B-12 [Concomitant]
  12. GLYBURIDE [Concomitant]
  13. CLOPIDOGREL [Concomitant]
  14. RANTIDINE [Concomitant]

REACTIONS (9)
  - Pain [None]
  - Myalgia [None]
  - Muscular weakness [None]
  - Muscle disorder [None]
  - Fatigue [None]
  - Confusional state [None]
  - Amnesia [None]
  - Vertigo [None]
  - Nausea [None]
